FAERS Safety Report 9382039 (Version 2)
Quarter: 2013Q3

REPORT INFORMATION
  Report Type: Spontaneous
  Country: MY (occurrence: MY)
  Receive Date: 20130703
  Receipt Date: 20130705
  Transmission Date: 20140515
  Serious: Yes (Death, Other)
  Sender: FDA-Public Use
  Company Number: MY-PFIZER INC-2013195437

PATIENT
  Age: 58 Year
  Sex: Male

DRUGS (3)
  1. HEPARIN SODIUM [Suspect]
     Indication: ANTICOAGULANT THERAPY
     Dosage: 60000 IU, UNK (8.5 MG/KG)
  2. ENOXAPARIN [Suspect]
     Indication: ANTICOAGULANT THERAPY
     Dosage: 40 MG, DAILY
     Route: 058
  3. TRANEXAMIC ACID [Concomitant]
     Indication: PROPHYLAXIS

REACTIONS (3)
  - Pulmonary sepsis [Fatal]
  - Haemorrhage [Unknown]
  - Heparin resistance [Unknown]
